FAERS Safety Report 9079642 (Version 1)
Quarter: 2013Q1

REPORT INFORMATION
  Report Type: Report from Study
  Country: US (occurrence: US)
  Receive Date: 20130130
  Receipt Date: 20130130
  Transmission Date: 20140127
  Serious: No
  Sender: FDA-Public Use
  Company Number: US-ABBOTT-12P-163-0970746-00

PATIENT
  Age: 62 Year
  Sex: Female

DRUGS (10)
  1. HUMIRA [Suspect]
     Indication: RHEUMATOID ARTHRITIS
     Dates: start: 20120509
  2. LEFLUNOMIDE [Concomitant]
     Indication: RHEUMATOID ARTHRITIS
  3. TRAMADOL [Concomitant]
     Indication: PAIN
  4. TRAMADOL [Concomitant]
     Indication: RHEUMATOID ARTHRITIS
  5. MELOXICAM [Concomitant]
     Indication: RHEUMATOID ARTHRITIS
  6. VITAMINS [Concomitant]
     Indication: PRODUCT USED FOR UNKNOWN INDICATION
  7. FOLIC ACID [Concomitant]
     Indication: RHEUMATOID ARTHRITIS
  8. IRON [Concomitant]
     Indication: ANAEMIA
  9. NASAL SPRAY [Concomitant]
     Indication: PRODUCT USED FOR UNKNOWN INDICATION
     Dosage: ONCE OR TWICE A YEAR
  10. NASAL SPRAY [Concomitant]
     Dosage: ONCE OR TWICE A DAY

REACTIONS (5)
  - Sinus disorder [Not Recovered/Not Resolved]
  - Dry mouth [Not Recovered/Not Resolved]
  - Groin pain [Unknown]
  - Gait disturbance [Unknown]
  - Tenderness [Unknown]
